FAERS Safety Report 14213550 (Version 11)
Quarter: 2018Q2

REPORT INFORMATION
  Report Type: Report from Study
  Country: None (occurrence: IE)
  Receive Date: 20171122
  Receipt Date: 20180530
  Transmission Date: 20180711
  Serious: Yes (Hospitalization, Other)
  Sender: FDA-Public Use
  Company Number: IE-ABBVIE-17P-229-1940125-00

PATIENT
  Age: 51 Year
  Sex: Female

DRUGS (19)
  1. DUODOPA [Suspect]
     Active Substance: CARBIDOPA\LEVODOPA
     Dosage: 1 CASSETTE, CONTINUOUS
     Route: 050
     Dates: start: 20160126, end: 20170331
  2. DUODOPA [Suspect]
     Active Substance: CARBIDOPA\LEVODOPA
     Dosage: CD: 2.3ML/HR; ED: 1.2ML
     Route: 050
     Dates: start: 20170403, end: 20170824
  3. DUODOPA [Suspect]
     Active Substance: CARBIDOPA\LEVODOPA
     Dosage: CONTINUOUS DOSE: 1.9ML/HR, MORNING DOSE: 4.2MLS
     Route: 050
     Dates: start: 20170905, end: 20171117
  4. RIVOTRIL [Concomitant]
     Active Substance: CLONAZEPAM
     Dosage: MORNING
     Route: 048
  5. OMEGA 3 FISH OIL [Concomitant]
     Active Substance: FISH OIL\OMEGA-3 FATTY ACIDS
     Indication: PRODUCT USED FOR UNKNOWN INDICATION
  6. SYMMETREL [Concomitant]
     Active Substance: AMANTADINE HYDROCHLORIDE
     Indication: PRODUCT USED FOR UNKNOWN INDICATION
     Route: 048
  7. RIVOTRIL [Concomitant]
     Active Substance: CLONAZEPAM
     Dosage: MORNING
     Route: 048
  8. RIVOTRIL [Concomitant]
     Active Substance: CLONAZEPAM
     Dosage: NIGHT
     Route: 048
  9. DUODOPA [Suspect]
     Active Substance: CARBIDOPA\LEVODOPA
     Indication: PARKINSON^S DISEASE
     Dosage: 1 CASSETTE, CONTINUOUS
     Route: 050
     Dates: start: 20160120, end: 20160126
  10. DUODOPA [Suspect]
     Active Substance: CARBIDOPA\LEVODOPA
     Dosage: CONTINUOUS RATE: 2.2ML/HR; CONTINUOUS
     Route: 050
     Dates: start: 20170331, end: 20170403
  11. DUODOPA [Suspect]
     Active Substance: CARBIDOPA\LEVODOPA
     Dosage: CD: 2.1ML/HR; ED: 1.2ML
     Route: 050
     Dates: start: 20170824, end: 20170825
  12. DUODOPA [Suspect]
     Active Substance: CARBIDOPA\LEVODOPA
     Dosage: MORNING DOSE: 5.2MLS, CONTINUOUS DOSE: 1.6ML/HR
     Route: 050
     Dates: start: 20171117, end: 20171120
  13. DUODOPA [Suspect]
     Active Substance: CARBIDOPA\LEVODOPA
     Dosage: CONTINUOUS DOSE: 1.9ML/HR
     Route: 050
     Dates: start: 20180117, end: 20180425
  14. DUODOPA [Suspect]
     Active Substance: CARBIDOPA\LEVODOPA
     Dosage: CD: 2.1ML/HR; ED: 1.1ML MORNING DOSE: 4.6ML
     Route: 050
     Dates: start: 20170825, end: 20170905
  15. DUODOPA [Suspect]
     Active Substance: CARBIDOPA\LEVODOPA
     Dosage: CONTINUOUS DOSE: 1.5ML/HR
     Route: 050
     Dates: start: 20180427
  16. SINEMET CR [Concomitant]
     Active Substance: CARBIDOPA\LEVODOPA
     Indication: PRODUCT USED FOR UNKNOWN INDICATION
     Dosage: CR:200/50MG NIGHT(HALF A TABLET IN MORNING AND LATE AFTERNOON)
     Route: 048
  17. RIVOTRIL [Concomitant]
     Active Substance: CLONAZEPAM
     Indication: PRODUCT USED FOR UNKNOWN INDICATION
     Dosage: NIGHT EXTRA
     Route: 048
  18. DUODOPA [Suspect]
     Active Substance: CARBIDOPA\LEVODOPA
     Dosage: CONTINUOUS DOSE: 1.7ML/HR?MORNING DOSE: 5.2ML
     Route: 050
     Dates: start: 20171120, end: 20180117
  19. SINEMET CR [Concomitant]
     Active Substance: CARBIDOPA\LEVODOPA
     Dosage: HALF SINEMET

REACTIONS (11)
  - On and off phenomenon [Recovered/Resolved]
  - Faecaloma [Recovered/Resolved]
  - Panic attack [Recovered/Resolved]
  - Paranoia [Recovered/Resolved]
  - Anxiety [Recovered/Resolved]
  - Dyskinesia [Recovered/Resolved]
  - Therapeutic response shortened [Recovered/Resolved]
  - Intentional self-injury [Recovered/Resolved]
  - Anxiety [Recovered/Resolved]
  - Anxiety [Not Recovered/Not Resolved]
  - Fear [Recovered/Resolved]

NARRATIVE: CASE EVENT DATE: 20170329
